FAERS Safety Report 8719577 (Version 2)
Quarter: 2012Q4

REPORT INFORMATION
  Report Type: 
  Country: US (occurrence: US)
  Receive Date: 20120813
  Receipt Date: 20121010
  Transmission Date: 20130627
  Serious: Yes (Other)
  Sender: FDA-Public Use
  Company Number: US-UCBSA-063156

PATIENT
  Age: 47 None
  Sex: Male

DRUGS (2)
  1. CIMZIA [Suspect]
     Indication: CROHN^S DISEASE
     Dates: start: 20120302, end: 2012
  2. CIMZIA [Suspect]
     Indication: CROHN^S DISEASE
     Dates: start: 2012

REACTIONS (3)
  - Incisional hernia [Recovered/Resolved]
  - Urethral haemorrhage [Recovered/Resolved]
  - Back pain [Recovered/Resolved]
